FAERS Safety Report 15367156 (Version 1)
Quarter: 2018Q3

REPORT INFORMATION
  Report Type: Spontaneous
  Country: US (occurrence: US)
  Receive Date: 20180903
  Receipt Date: 20180903
  Transmission Date: 20181010
  Serious: No
  Sender: FDA-Public Use
  Company Number: None

PATIENT
  Age: 50 Year
  Sex: Female
  Weight: 224 kg

DRUGS (2)
  1. OMNIPOD [Concomitant]
  2. TRULICITY [Suspect]
     Active Substance: DULAGLUTIDE
     Indication: TYPE 2 DIABETES MELLITUS
     Dosage: ?          QUANTITY:1 INJECTION(S);OTHER FREQUENCY:ONCE A WEEK;OTHER ROUTE:INJECTION?

REACTIONS (6)
  - Flatulence [None]
  - Abdominal distension [None]
  - Dyspepsia [None]
  - Diarrhoea [None]
  - Hyperchlorhydria [None]
  - Abdominal pain upper [None]

NARRATIVE: CASE EVENT DATE: 20161228
